FAERS Safety Report 7213156-2 (Version None)
Quarter: 2011Q1

REPORT INFORMATION
  Report Type: 
  Country: None (occurrence: None)
  Receive Date: 20110106
  Receipt Date: 20100921
  Transmission Date: 20110831
  Serious: Yes (Hospitalization)
  Sender: FDA-Public Use
  Company Number: PHHY2010DE71726

PATIENT
  Age: 76 Year
  Sex: Male
  Weight: 90.5 kg

DRUGS (7)
  1. ACETYLSALICYLIC ACID [Concomitant]
     Dosage: 100 MG, ONCE DAILY
     Dates: start: 20070701
  2. LISI-PUREN [Concomitant]
     Indication: HYPERTENSION
     Dosage: 15 MG TWICE DAILY
     Dates: start: 20070201
  3. EXFORGE [Concomitant]
     Indication: HYPERTENSION
     Dosage: 5 MG ONCE DAILY
     Dates: start: 20070701
  4. AMLODIPINE [Concomitant]
     Indication: HYPERTENSION
     Dosage: 5 MG ONCE DAILY
     Dates: start: 20070701
  5. METOPROLOL [Suspect]
     Indication: HYPERTENSION
     Dosage: 50 MG, DAILY
     Route: 048
     Dates: start: 20070701
  6. SIMVASTATIN [Concomitant]
     Indication: HYPERCHOLESTEROLAEMIA
     Dosage: 20 MG, ONCE DAILY
     Dates: start: 20070701
  7. MOXONIDINE [Suspect]
     Indication: HYPERTENSION
     Dosage: 0.3 MG, DAILY
     Route: 048
     Dates: start: 20070701

REACTIONS (10)
  - HEART RATE DECREASED [None]
  - SYNCOPE [None]
  - BLOOD POTASSIUM INCREASED [None]
  - WHITE BLOOD CELL COUNT INCREASED [None]
  - MALAISE [None]
  - BLOOD CREATININE INCREASED [None]
  - BRADYCARDIA [None]
  - PULSE ABSENT [None]
  - BLOOD PRESSURE DIASTOLIC DECREASED [None]
  - BLOOD UREA INCREASED [None]
